FAERS Safety Report 8063974-6 (Version None)
Quarter: 2012Q1

REPORT INFORMATION
  Report Type: 
  Country: None (occurrence: None)
  Receive Date: 20120123
  Receipt Date: 20120117
  Transmission Date: 20120608
  Serious: Yes (Hospitalization)
  Sender: FDA-Public Use
  Company Number: PHHY2011KW57691

PATIENT
  Age: 39 Year
  Sex: Male

DRUGS (3)
  1. GILENYA [Suspect]
     Indication: MULTIPLE SCLEROSIS
     Dosage: 0.5 MG, QD
     Route: 048
     Dates: start: 20110622, end: 20110623
  2. GILENYA [Suspect]
     Dosage: 0.5 MG, QD
     Route: 048
     Dates: start: 20111001
  3. DIOVAN [Concomitant]
     Dosage: UNK UKN, OT

REACTIONS (7)
  - CHEST PAIN [None]
  - TROPONIN INCREASED [None]
  - HEART RATE DECREASED [None]
  - ACUTE MYOCARDIAL INFARCTION [None]
  - CHEST DISCOMFORT [None]
  - HYPERHIDROSIS [None]
  - ARTERIOSCLEROSIS CORONARY ARTERY [None]
